FAERS Safety Report 7779524-5 (Version None)
Quarter: 2011Q3

REPORT INFORMATION
  Report Type: 
  Country: None (occurrence: None)
  Receive Date: 20110927
  Receipt Date: 20110922
  Transmission Date: 20111222
  Serious: Yes (Hospitalization)
  Sender: FDA-Public Use
  Company Number: NL-SHIRE-SPV1-2011-01228

PATIENT
  Sex: Female
  Weight: 76 kg

DRUGS (1)
  1. MESALAMINE [Suspect]
     Indication: COLITIS
     Dosage: 1200 MG, 4X/DAY:QID
     Route: 048
     Dates: start: 20110806, end: 20110830

REACTIONS (2)
  - RASH ERYTHEMATOUS [None]
  - PANCREATITIS [None]
